FAERS Safety Report 5603056-3 (Version None)
Quarter: 2008Q1

REPORT INFORMATION
  Report Type: 
  Country: None (occurrence: None)
  Receive Date: 20080125
  Receipt Date: 20080114
  Transmission Date: 20080703
  Serious: Yes (Other)
  Sender: FDA-Public Use
  Company Number: NO-PFIZER INC-2007089274

PATIENT
  Sex: Female

DRUGS (2)
  1. ZOLOFT [Suspect]
     Route: 048
     Dates: start: 19910101, end: 20020101
  2. SINEQUAN [Concomitant]
     Dates: start: 19910101, end: 20020101

REACTIONS (16)
  - AMOEBIASIS [None]
  - BLOOD PROLACTIN INCREASED [None]
  - COGNITIVE DISORDER [None]
  - CONCUSSION [None]
  - DIZZINESS [None]
  - FATIGUE [None]
  - FLUSHING [None]
  - HYPOAESTHESIA [None]
  - INSOMNIA [None]
  - NERVOUS SYSTEM DISORDER [None]
  - PAIN [None]
  - PARAESTHESIA [None]
  - RESTLESS LEGS SYNDROME [None]
  - TONSILLITIS [None]
  - UNEVALUABLE EVENT [None]
  - VITAMIN B12 DEFICIENCY [None]
